FAERS Safety Report 21382297 (Version 1)
Quarter: 2022Q3

REPORT INFORMATION
  Report Type: Spontaneous
  Country: CA (occurrence: CA)
  Receive Date: 20220927
  Receipt Date: 20220927
  Transmission Date: 20221026
  Serious: Yes (Other)
  Sender: FDA-Public Use
  Company Number: CA-JNJFOC-20220954123

PATIENT

DRUGS (2)
  1. ACETAMINOPHEN [Suspect]
     Active Substance: ACETAMINOPHEN
     Indication: Product used for unknown indication
     Dosage: MORE THAN ONE DAY PER WEEK  (N=23/94, 24.5%).
     Route: 048
  2. ACETAMINOPHEN [Suspect]
     Active Substance: ACETAMINOPHEN
     Dosage: MORE THAN ONE DAY PER WEEK (N=21/93, 22.6%).
     Route: 048

REACTIONS (3)
  - Hepatotoxicity [Unknown]
  - Toxicity to various agents [Unknown]
  - Product administration error [Unknown]
